FAERS Safety Report 13044264 (Version 1)
Quarter: 2016Q4

REPORT INFORMATION
  Report Type: Spontaneous
  Country: US (occurrence: US)
  Receive Date: 20161220
  Receipt Date: 20161220
  Transmission Date: 20170207
  Serious: No
  Sender: FDA-Public Use
  Company Number: US-ROCHE-1031572

PATIENT

DRUGS (1)
  1. ZELBORAF [Suspect]
     Active Substance: VEMURAFENIB
     Indication: METASTATIC MALIGNANT MELANOMA
     Route: 065
     Dates: start: 201109

REACTIONS (5)
  - Dysgeusia [Unknown]
  - Unevaluable event [Not Recovered/Not Resolved]
  - Adverse event [Not Recovered/Not Resolved]
  - Product quality issue [Unknown]
  - Acne [Not Recovered/Not Resolved]
